FAERS Safety Report 11120683 (Version 4)
Quarter: 2015Q4

REPORT INFORMATION
  Report Type: Report from Study
  Country: US (occurrence: US)
  Receive Date: 20150519
  Receipt Date: 20151015
  Transmission Date: 20160304
  Serious: Yes (Hospitalization, Other)
  Sender: FDA-Public Use
  Company Number: US-BAYER-2014-150176

PATIENT
  Age: 91 Year
  Sex: Male
  Weight: 70.75 kg

DRUGS (5)
  1. ADEMPAS [Suspect]
     Active Substance: RIOCIGUAT
     Indication: PULMONARY HYPERTENSION
     Dosage: 1 MG, TID
     Route: 048
  2. COUMADIN [Concomitant]
     Active Substance: WARFARIN SODIUM
     Dosage: UNK
  3. XARELTO [Suspect]
     Active Substance: RIVAROXABAN
     Dosage: UNK
     Dates: end: 201410
  4. ADEMPAS [Suspect]
     Active Substance: RIOCIGUAT
     Indication: PULMONARY HYPERTENSION
     Dosage: UNK
     Dates: start: 20140730
  5. ADEMPAS [Suspect]
     Active Substance: RIOCIGUAT
     Indication: PULMONARY HYPERTENSION
     Dosage: 1 MG, TID
     Dates: start: 20140731

REACTIONS (10)
  - Fatigue [None]
  - Transfusion [None]
  - Dizziness [Unknown]
  - Gastrointestinal haemorrhage [Unknown]
  - Transfusion [None]
  - Blood pressure diastolic decreased [None]
  - Dizziness [None]
  - Blood count abnormal [None]
  - Transfusion [None]
  - Drug ineffective [Unknown]

NARRATIVE: CASE EVENT DATE: 20141007
